FAERS Safety Report 12325777 (Version 5)
Quarter: 2018Q3

REPORT INFORMATION
  Report Type: Report from Study
  Country: DE (occurrence: DE)
  Receive Date: 20160503
  Receipt Date: 20180709
  Transmission Date: 20181010
  Serious: Yes (Death, Hospitalization)
  Sender: FDA-Public Use
  Company Number: DE-ROCHE-1698372

PATIENT
  Age: 75 Year
  Sex: Female

DRUGS (10)
  1. RAMIPRIL. [Concomitant]
     Active Substance: RAMIPRIL
  2. TOCILIZUMAB. [Suspect]
     Active Substance: TOCILIZUMAB
     Indication: RHEUMATOID ARTHRITIS
     Route: 058
     Dates: start: 20141009, end: 20150507
  3. TOCILIZUMAB. [Suspect]
     Active Substance: TOCILIZUMAB
     Route: 042
     Dates: start: 201606, end: 20170508
  4. SIMVASTATIN. [Concomitant]
     Active Substance: SIMVASTATIN
  5. PREDNISOLON [Concomitant]
     Active Substance: PREDNISOLONE
  6. ASPIRIN. [Concomitant]
     Active Substance: ASPIRIN
  7. ISOSORBIDDINITRAT [Concomitant]
     Active Substance: ISOSORBIDE DINITRATE
  8. L?THYROXIN [Concomitant]
     Active Substance: LEVOTHYROXINE SODIUM
  9. METOPROLOL. [Concomitant]
     Active Substance: METOPROLOL
  10. TOCILIZUMAB. [Suspect]
     Active Substance: TOCILIZUMAB
     Indication: RHEUMATOID ARTHRITIS
     Route: 042
     Dates: start: 201209, end: 20140911

REACTIONS (6)
  - Intestinal infarction [Fatal]
  - Cardiovascular insufficiency [Fatal]
  - Transient ischaemic attack [Unknown]
  - Respiratory tract infection [Unknown]
  - Adenocarcinoma of colon [Recovered/Resolved]
  - Peritonitis [Not Recovered/Not Resolved]

NARRATIVE: CASE EVENT DATE: 20150514
